FAERS Safety Report 10349484 (Version 1)
Quarter: 2014Q3

REPORT INFORMATION
  Report Type: Spontaneous
  Country: US (occurrence: None)
  Receive Date: 20140728
  Receipt Date: 20140728
  Transmission Date: 20150326
  Serious: Yes (Hospitalization)
  Sender: FDA-Public Use
  Company Number: None

PATIENT
  Age: 52 Year
  Sex: Male
  Weight: 103 kg

DRUGS (1)
  1. ERBITUX [Suspect]
     Active Substance: CETUXIMAB

REACTIONS (3)
  - Chills [None]
  - Mucosal infection [None]
  - Myocardial ischaemia [None]

NARRATIVE: CASE EVENT DATE: 20140717
